FAERS Safety Report 4841474-1 (Version None)
Quarter: 2005Q4

REPORT INFORMATION
  Report Type: 
  Country: None (occurrence: None)
  Receive Date: 20051130
  Receipt Date: 20051122
  Transmission Date: 20060501
  Serious: Yes (Hospitalization)
  Sender: FDA-Public Use
  Company Number: JP-BOEHRINGER INGELHEIM PHARMACEUTICALS, INC.-2005-BP-20661YA

PATIENT
  Sex: Male

DRUGS (3)
  1. HARNAL [Suspect]
     Indication: BENIGN PROSTATIC HYPERPLASIA
     Route: 048
     Dates: start: 20041203, end: 20050307
  2. HARNAL [Suspect]
     Indication: DYSURIA
  3. VOGLIBOSE [Concomitant]
     Indication: DIABETES MELLITUS
     Route: 048
     Dates: start: 20050310, end: 20050312

REACTIONS (3)
  - CHOLANGITIS ACUTE [None]
  - CHOLELITHIASIS [None]
  - WHITE BLOOD CELL COUNT INCREASED [None]
